FAERS Safety Report 18037778 (Version 1)
Quarter: 2020Q3

REPORT INFORMATION
  Report Type: Spontaneous
  Country: US (occurrence: US)
  Receive Date: 20200717
  Receipt Date: 20200717
  Transmission Date: 20201103
  Serious: Yes (Other)
  Sender: FDA-Public Use
  Company Number: US-SUNOVION-2020SUN002050

PATIENT
  Sex: Female

DRUGS (2)
  1. LATUDA [Suspect]
     Active Substance: LURASIDONE HYDROCHLORIDE
     Dosage: 20 MG
     Route: 048
  2. LATUDA [Suspect]
     Active Substance: LURASIDONE HYDROCHLORIDE
     Dosage: UNK
     Route: 048

REACTIONS (9)
  - Akathisia [Unknown]
  - Restless legs syndrome [Unknown]
  - Agitation [Unknown]
  - Paradoxical drug reaction [Unknown]
  - Drug intolerance [Unknown]
  - Anhedonia [Unknown]
  - Restlessness [Unknown]
  - Mania [Unknown]
  - Bipolar I disorder [Unknown]
